FAERS Safety Report 17824086 (Version 1)
Quarter: 2020Q2

REPORT INFORMATION
  Report Type: Spontaneous
  Country: US (occurrence: US)
  Receive Date: 20200526
  Receipt Date: 20200526
  Transmission Date: 20200714
  Serious: Yes (Other)
  Sender: FDA-Public Use
  Company Number: None

PATIENT
  Age: 69 Year
  Sex: Male
  Weight: 65 kg

DRUGS (22)
  1. REMDESIVIR. [Suspect]
     Active Substance: REMDESIVIR
     Indication: COVID-19
     Route: 041
     Dates: start: 20200517, end: 20200521
  2. INSULIN LISPRO [Concomitant]
     Active Substance: INSULIN LISPRO
     Dates: start: 20200513, end: 20200524
  3. POTASSIUM [Concomitant]
     Active Substance: POTASSIUM
     Dates: start: 20200518, end: 20200518
  4. ASPRIN [Concomitant]
     Active Substance: ASPIRIN
     Dates: start: 20200513
  5. ACETAMINOPHEN. [Concomitant]
     Active Substance: ACETAMINOPHEN
     Dates: start: 20200513
  6. METHYLPREDNISONE [Concomitant]
     Active Substance: METHYLPREDNISOLONE
     Dates: start: 20200515, end: 20200520
  7. MIDODRINE [Concomitant]
     Active Substance: MIDODRINE
     Dates: start: 20200515, end: 20200524
  8. DOCUSATE [Concomitant]
     Active Substance: DOCUSATE
     Dates: start: 20200512
  9. HYDROMORPHONE DRIP [Concomitant]
     Dates: start: 20200516, end: 20200521
  10. EPOPROSTENOL. [Concomitant]
     Active Substance: EPOPROSTENOL
     Dates: start: 20200513, end: 20200520
  11. METOLAZONE. [Concomitant]
     Active Substance: METOLAZONE
     Dates: start: 20200516, end: 20200519
  12. KETAMINE DRIP [Concomitant]
     Dates: start: 20200516, end: 20200521
  13. ALBUTEROL IPRATROPIUM [Concomitant]
     Active Substance: ALBUTEROL\IPRATROPIUM
     Dates: start: 20200512, end: 20200523
  14. FAMOTIDINE. [Concomitant]
     Active Substance: FAMOTIDINE
     Dates: start: 20200512
  15. SENNOSIDES. [Concomitant]
     Active Substance: SENNOSIDES
     Dates: start: 20200512
  16. HEPARIN [Concomitant]
     Active Substance: HEPARIN SODIUM
     Dates: start: 20200515, end: 20200521
  17. CISATRACURIUM DRIP [Concomitant]
     Dates: start: 20200516, end: 20200520
  18. ACETAZOLAMIDE. [Concomitant]
     Active Substance: ACETAZOLAMIDE
     Dates: start: 20200518, end: 20200519
  19. NOREPINEPHRINE. [Concomitant]
     Active Substance: NOREPINEPHRINE
     Dates: start: 20200513, end: 20200521
  20. AMPICILLIN SULBACTAM [Concomitant]
     Active Substance: AMPICILLIN SODIUM\SULBACTAM SODIUM
     Dates: start: 20200516, end: 20200524
  21. FUROSEMIDE. [Concomitant]
     Active Substance: FUROSEMIDE
     Dates: start: 20200518
  22. OXYCODONE [Concomitant]
     Active Substance: OXYCODONE
     Dates: start: 20200520, end: 20200522

REACTIONS (1)
  - Aspartate aminotransferase increased [None]

NARRATIVE: CASE EVENT DATE: 20200522
